FAERS Safety Report 7114017-X (Version None)
Quarter: 2010Q4

REPORT INFORMATION
  Report Type: 
  Country: None (occurrence: None)
  Receive Date: 20101119
  Receipt Date: 20101111
  Transmission Date: 20110411
  Serious: Yes (Hospitalization)
  Sender: FDA-Public Use
  Company Number: B0677624A

PATIENT
  Sex: Male

DRUGS (9)
  1. LAMICTAL [Suspect]
     Indication: EPILEPSY
     Dosage: 50MG PER DAY
     Route: 048
     Dates: start: 20100609, end: 20100712
  2. TEGRETOL [Concomitant]
     Indication: EPILEPSY
     Dosage: 400MG PER DAY
     Route: 048
     Dates: start: 20100602
  3. NORVASC [Concomitant]
     Indication: HYPERTENSION
     Dosage: 2.5MG PER DAY
     Route: 048
     Dates: start: 20100531
  4. GLIMICRON [Concomitant]
     Indication: DIABETES MELLITUS
     Dosage: 160MG PER DAY
     Route: 048
     Dates: start: 20090911
  5. 8-HOUR BAYER [Concomitant]
     Indication: ARTERIOSCLEROSIS CORONARY ARTERY
     Dosage: 100MG PER DAY
     Route: 048
     Dates: start: 20090831
  6. ZYLORIC [Concomitant]
     Indication: HYPERURICAEMIA
     Dosage: 100MG PER DAY
     Route: 048
     Dates: start: 20061120
  7. DEPAS [Concomitant]
     Indication: HYPERTENSION
     Dosage: 1MG PER DAY
     Route: 048
     Dates: start: 20080828
  8. VOGLIBOSE [Concomitant]
     Indication: DIABETES MELLITUS
     Dosage: .6MG PER DAY
     Route: 048
     Dates: start: 20070802, end: 20100629
  9. MAGNESIUM OXIDE [Concomitant]
     Indication: CONSTIPATION
     Dosage: 2G PER DAY
     Route: 048
     Dates: start: 20100326

REACTIONS (4)
  - DIPLOPIA [None]
  - DRUG ERUPTION [None]
  - LOSS OF CONSCIOUSNESS [None]
  - RASH ERYTHEMATOUS [None]
